FAERS Safety Report 25981238 (Version 1)
Quarter: 2025Q4

REPORT INFORMATION
  Report Type: Spontaneous
  Country: CN (occurrence: CN)
  Receive Date: 20251030
  Receipt Date: 20251030
  Transmission Date: 20260117
  Serious: Yes (Other)
  Sender: ALEXION PHARMACEUTICALS
  Company Number: CN-ASTRAZENECA-202510GLO027365CN

PATIENT
  Age: 60 Year
  Sex: Female

DRUGS (6)
  1. OSIMERTINIB [Suspect]
     Active Substance: OSIMERTINIB
     Indication: Lung adenocarcinoma
     Dosage: 80 MILLIGRAM, QD
     Route: 065
     Dates: start: 20240202
  2. GEFITINIB [Suspect]
     Active Substance: GEFITINIB
     Indication: Lung adenocarcinoma
     Dosage: UNK
     Route: 065
  3. TACROLIMUS [Concomitant]
     Active Substance: TACROLIMUS
  4. PREDNISOLONE [Concomitant]
     Active Substance: PREDNISOLONE
  5. SIROLIMUS [Concomitant]
     Active Substance: SIROLIMUS
  6. DACOMITINIB [Concomitant]
     Active Substance: DACOMITINIB

REACTIONS (6)
  - Malignant neoplasm progression [Unknown]
  - Tumour marker increased [Unknown]
  - Nodule [Unknown]
  - Paronychia [Unknown]
  - Haematuria [Unknown]
  - Proteinuria [Unknown]
